FAERS Safety Report 20492220 (Version 9)
Quarter: 2022Q3

REPORT INFORMATION
  Report Type: Report from Study
  Country: NL (occurrence: NL)
  Receive Date: 20220218
  Receipt Date: 20220715
  Transmission Date: 20221026
  Serious: Yes (Hospitalization, Other)
  Sender: FDA-Public Use
  Company Number: NL-BRISTOL-MYERS SQUIBB COMPANY-BMS-2022-021919

PATIENT
  Age: 44 Year
  Sex: Female

DRUGS (2)
  1. BEMPEGALDESLEUKIN [Suspect]
     Active Substance: BEMPEGALDESLEUKIN
     Indication: Malignant melanoma stage III
     Dosage: 0.006 MG/KG; 0.41 MG Q3WK?PRIOR TO THE EVENT ONSET, THE PATIENT RECEIVED HER MOST RECENT DOSE OF NIV
     Route: 042
     Dates: start: 20211005
  2. TRAMADOL [Concomitant]
     Active Substance: TRAMADOL
     Indication: Pain
     Dosage: 50 MILLIGRAM, QID
     Route: 048
     Dates: start: 20141209

REACTIONS (1)
  - Hypersensitivity [Recovered/Resolved]

NARRATIVE: CASE EVENT DATE: 20220209
